FAERS Safety Report 21316000 (Version 6)
Quarter: 2024Q3

REPORT INFORMATION
  Report Type: Report from Study
  Country: GB (occurrence: GB)
  Receive Date: 20220910
  Receipt Date: 20240724
  Transmission Date: 20241016
  Serious: Yes (Hospitalization)
  Sender: NOVARTIS
  Company Number: GB-NOVARTISPH-NVSC2021GB239129

PATIENT
  Age: 63 Year
  Sex: Female
  Weight: 56 kg

DRUGS (16)
  1. LUTATHERA [Suspect]
     Active Substance: LUTETIUM OXODOTREOTIDE LU-177
     Indication: Gastroenteropancreatic neuroendocrine tumour disease
     Dosage: 7400 MBQ (CYCLE 1)
     Route: 042
     Dates: start: 20210310
  2. LUTATHERA [Suspect]
     Active Substance: LUTETIUM OXODOTREOTIDE LU-177
     Dosage: 7400 MBQ (CYCLE 2)
     Route: 042
     Dates: start: 20210512
  3. LUTATHERA [Suspect]
     Active Substance: LUTETIUM OXODOTREOTIDE LU-177
     Dosage: 7400 MBQ (CYCLE 3)
     Route: 042
     Dates: start: 20210728
  4. LUTATHERA [Suspect]
     Active Substance: LUTETIUM OXODOTREOTIDE LU-177
     Dosage: 7400 MBQ (CYCLE 4)
     Route: 042
     Dates: start: 20211006
  5. LANREOTIDE [Concomitant]
     Active Substance: LANREOTIDE
     Indication: Product used for unknown indication
     Dosage: 120 MG, Q4W
     Route: 065
     Dates: start: 201708
  6. LANREOTIDE [Concomitant]
     Active Substance: LANREOTIDE
     Dosage: UNK
     Route: 058
     Dates: start: 20171002
  7. CREON [Concomitant]
     Active Substance: PANCRELIPASE AMYLASE\PANCRELIPASE LIPASE\PANCRELIPASE PROTEASE
     Indication: Pancreatic enzyme replacement therapy
     Dosage: UNK
     Route: 048
  8. NITRAZEPAM [Concomitant]
     Active Substance: NITRAZEPAM
     Indication: Depressive symptom
     Dosage: UNK
     Route: 048
  9. RAMIPRIL [Concomitant]
     Active Substance: RAMIPRIL
     Indication: Hypertension
     Dosage: UNK
     Route: 048
     Dates: start: 2021
  10. AMLODIPINE [Concomitant]
     Active Substance: AMLODIPINE BESYLATE
     Indication: Hypertension
     Dosage: UNK
     Route: 048
     Dates: start: 202110, end: 202110
  11. AMLODIPINE [Concomitant]
     Active Substance: AMLODIPINE BESYLATE
     Dosage: UNK
     Route: 048
     Dates: start: 20240504
  12. POLYETHYLENE GLYCOLS [Concomitant]
     Active Substance: POLYETHYLENE GLYCOLS
     Indication: Prophylaxis
     Dosage: UNK
     Route: 048
     Dates: start: 20240428
  13. PAROXETINE [Concomitant]
     Active Substance: PAROXETINE
     Indication: Depressive symptom
     Dosage: UNK
     Route: 048
     Dates: start: 20240109
  14. SODIUM PHOSPHATE, MONOBASIC, ANHYDROUS [Concomitant]
     Active Substance: SODIUM PHOSPHATE, MONOBASIC, ANHYDROUS
     Indication: Prophylaxis
     Dosage: UNK
     Route: 048
     Dates: start: 20240427, end: 20240429
  15. ENOXAPARIN [Concomitant]
     Active Substance: ENOXAPARIN
     Indication: Prophylaxis
     Dosage: UNK
     Route: 058
     Dates: start: 20240425, end: 20240506
  16. ENOXAPARIN [Concomitant]
     Active Substance: ENOXAPARIN
     Indication: Deep vein thrombosis

REACTIONS (28)
  - Subcutaneous abscess [Recovered/Resolved]
  - Axillary pain [Unknown]
  - Axillary mass [Unknown]
  - Cellulitis [Recovered/Resolved]
  - Rash [Recovered/Resolved]
  - Herpes zoster [Recovered/Resolved]
  - Malaise [Recovered/Resolved]
  - Mood altered [Not Recovered/Not Resolved]
  - Vitamin D deficiency [Not Recovered/Not Resolved]
  - Normocytic anaemia [Not Recovered/Not Resolved]
  - Glucose tolerance impaired [Not Recovered/Not Resolved]
  - Fatigue [Not Recovered/Not Resolved]
  - Weight gain poor [Not Recovered/Not Resolved]
  - Dyspnoea [Recovered/Resolved]
  - Depression [Not Recovered/Not Resolved]
  - Liver disorder [Not Recovered/Not Resolved]
  - Fatigue [Not Recovered/Not Resolved]
  - Gastroenteritis viral [Not Recovered/Not Resolved]
  - Retching [Not Recovered/Not Resolved]
  - Nausea [Not Recovered/Not Resolved]
  - Abdominal pain [Recovered/Resolved]
  - Hyponatraemia [Recovered/Resolved]
  - Pyrexia [Recovered/Resolved]
  - Gastroenteritis [Not Recovered/Not Resolved]
  - Vomiting [Recovered/Resolved]
  - Escherichia bacteraemia [Recovered/Resolved]
  - Musculoskeletal chest pain [Not Recovered/Not Resolved]
  - Liver function test abnormal [Not Recovered/Not Resolved]

NARRATIVE: CASE EVENT DATE: 20211018
